FAERS Safety Report 4905188-1 (Version None)
Quarter: 2006Q1

REPORT INFORMATION
  Report Type: 
  Country: None (occurrence: None)
  Receive Date: 20060208
  Receipt Date: 20051123
  Transmission Date: 20060701
  Serious: No
  Sender: FDA-Public Use
  Company Number: US-GLAXOSMITHKLINE-A0583488A

PATIENT
  Age: 38 Year
  Sex: Female

DRUGS (5)
  1. PAXIL [Suspect]
     Indication: OBSESSIVE-COMPULSIVE DISORDER
     Dosage: 40MG AT NIGHT
     Route: 048
     Dates: start: 20050601
  2. METFORMIN HYDROCHLORIDE [Concomitant]
  3. ATENOLOL [Concomitant]
  4. LISINOPRIL [Concomitant]
  5. IRON SUPPLEMENT [Concomitant]

REACTIONS (6)
  - ASTHENIA [None]
  - DECREASED APPETITE [None]
  - DRUG INEFFECTIVE [None]
  - FATIGUE [None]
  - LOSS OF LIBIDO [None]
  - OBSESSIVE-COMPULSIVE DISORDER [None]
